FAERS Safety Report 18641767 (Version 2)
Quarter: 2021Q1

REPORT INFORMATION
  Report Type: Report from Study
  Country: US (occurrence: US)
  Receive Date: 20201221
  Receipt Date: 20210205
  Transmission Date: 20210419
  Serious: No
  Sender: FDA-Public Use
  Company Number: NVSC2020US335473

PATIENT
  Sex: Female

DRUGS (2)
  1. COSENTYX [Suspect]
     Active Substance: SECUKINUMAB
     Dosage: UNK
     Route: 058
     Dates: start: 202009
  2. COSENTYX [Suspect]
     Active Substance: SECUKINUMAB
     Indication: PSORIASIS
     Dosage: UNK
     Route: 058
     Dates: start: 2020

REACTIONS (7)
  - Skin fissures [Unknown]
  - COVID-19 [Unknown]
  - Rash [Unknown]
  - Dyspnoea [Unknown]
  - Product dose omission issue [Unknown]
  - Herpes zoster [Recovering/Resolving]
  - Skin plaque [Unknown]
